FAERS Safety Report 23578567 (Version 1)
Quarter: 2024Q1

REPORT INFORMATION
  Report Type: Spontaneous
  Country: DE (occurrence: DE)
  Receive Date: 20240229
  Receipt Date: 20240229
  Transmission Date: 20240410
  Serious: Yes (Death)
  Sender: FDA-Public Use
  Company Number: DE-SANDOZ-SDZ2023DE015334

PATIENT
  Age: 20 Year
  Sex: Female

DRUGS (5)
  1. DOXORUBICIN [Suspect]
     Active Substance: DOXORUBICIN
     Indication: Lipoblastoma
     Dosage: UNK
     Route: 065
  2. MITOMYCIN [Suspect]
     Active Substance: MITOMYCIN
     Indication: Lipoblastoma
     Dosage: UNK
     Route: 065
     Dates: start: 2018
  3. NINTEDANIB [Suspect]
     Active Substance: NINTEDANIB
     Indication: Lipoblastoma
     Dosage: 400MG PER DAY
     Route: 065
  4. PALBOCICLIB [Suspect]
     Active Substance: PALBOCICLIB
     Indication: Lipoblastoma
     Dosage: UNK
     Route: 065
  5. PAZOPANIB [Suspect]
     Active Substance: PAZOPANIB
     Indication: Lipoblastoma
     Dosage: 800MG PER DAY
     Route: 065

REACTIONS (3)
  - Lipoblastoma [Fatal]
  - Disease progression [Fatal]
  - Drug ineffective [Unknown]
